FAERS Safety Report 24613991 (Version 1)
Quarter: 2024Q4

REPORT INFORMATION
  Report Type: Report from Study
  Country: US (occurrence: US)
  Receive Date: 20241113
  Receipt Date: 20241113
  Transmission Date: 20250115
  Serious: Yes (Other)
  Sender: ASTELLAS
  Company Number: US-ASTELLAS-2024-AER-017013

PATIENT
  Age: 64 Year
  Sex: Male

DRUGS (2)
  1. XTANDI [Suspect]
     Active Substance: ENZALUTAMIDE
     Indication: Prostate cancer
     Route: 048
     Dates: start: 202311
  2. XTANDI [Suspect]
     Active Substance: ENZALUTAMIDE
     Route: 048
     Dates: start: 2024

REACTIONS (14)
  - Pneumonia [Unknown]
  - Seizure [Unknown]
  - Loss of consciousness [Unknown]
  - Weight decreased [Unknown]
  - Fall [Not Recovered/Not Resolved]
  - Bronchitis [Unknown]
  - Hernia [Unknown]
  - Vomiting [Unknown]
  - Hot flush [Not Recovered/Not Resolved]
  - Fatigue [Not Recovered/Not Resolved]
  - Back disorder [Not Recovered/Not Resolved]
  - Herpes zoster [Unknown]
  - Hypersomnia [Unknown]
  - Drug intolerance [Unknown]

NARRATIVE: CASE EVENT DATE: 20240201
